FAERS Safety Report 12841971 (Version 1)
Quarter: 2016Q4

REPORT INFORMATION
  Report Type: Spontaneous
  Country: FR (occurrence: FR)
  Receive Date: 20161012
  Receipt Date: 20161012
  Transmission Date: 20170207
  Serious: Yes (Other)
  Sender: FDA-Public Use
  Company Number: FR-ALLERGAN-1672057US

PATIENT
  Sex: Female
  Weight: 2.1 kg

DRUGS (5)
  1. SEROPLEX TABLETS [Suspect]
     Active Substance: ESCITALOPRAM OXALATE
     Indication: MATERNAL EXPOSURE TIMING UNSPECIFIED
     Route: 064
     Dates: start: 20051017, end: 200612
  2. LARGACTIL [Suspect]
     Active Substance: CHLORPROMAZINE
     Indication: MATERNAL EXPOSURE TIMING UNSPECIFIED
     Route: 064
     Dates: start: 20061221, end: 20070620
  3. ABILIFY [Suspect]
     Active Substance: ARIPIPRAZOLE
     Indication: MATERNAL EXPOSURE TIMING UNSPECIFIED
     Route: 064
     Dates: start: 20050624, end: 200612
  4. DEPAMIDE [Suspect]
     Active Substance: VALPROMIDE
     Indication: MATERNAL EXPOSURE TIMING UNSPECIFIED
     Route: 064
     Dates: start: 2001, end: 200612
  5. SERESTA [Suspect]
     Active Substance: OXAZEPAM
     Indication: MATERNAL EXPOSURE TIMING UNSPECIFIED
     Route: 064
     Dates: start: 20061221, end: 20070620

REACTIONS (1)
  - Premature baby [Unknown]

NARRATIVE: CASE EVENT DATE: 20070620
